FAERS Safety Report 7242316-X (Version None)
Quarter: 2011Q1

REPORT INFORMATION
  Report Type: 
  Country: None (occurrence: None)
  Receive Date: 20110125
  Receipt Date: 20110119
  Transmission Date: 20110831
  Serious: Yes (Hospitalization)
  Sender: FDA-Public Use
  Company Number: FR-BIOGENIDEC-2010BI041414

PATIENT
  Age: 46 Year
  Sex: Male
  Weight: 65 kg

DRUGS (7)
  1. LIORESAL [Concomitant]
     Indication: MUSCLE SPASTICITY
  2. XATRAL [Concomitant]
     Indication: URINARY TRACT DISORDER
  3. FORTRANS [Concomitant]
  4. TYSABRI [Suspect]
     Indication: RELAPSING-REMITTING MULTIPLE SCLEROSIS
     Route: 042
     Dates: start: 20090901
  5. ZOLOFT [Concomitant]
     Indication: DEPRESSION
  6. ARIXTRA [Concomitant]
     Indication: THROMBOSIS PROPHYLAXIS
     Dates: start: 20101101
  7. ARTANE [Concomitant]
     Indication: TREMOR

REACTIONS (3)
  - LUNG ABSCESS [None]
  - LUNG INFECTION [None]
  - PYELONEPHRITIS [None]
